FAERS Safety Report 7525396-3 (Version None)
Quarter: 2011Q2

REPORT INFORMATION
  Report Type: 
  Country: None (occurrence: None)
  Receive Date: 20110602
  Receipt Date: 20110602
  Transmission Date: 20111010
  Serious: Yes (Disabling)
  Sender: FDA-Public Use
  Company Number: None

PATIENT
  Sex: Female
  Weight: 53.5244 kg

DRUGS (2)
  1. MIRENA [Suspect]
     Indication: ENDOMETRIOSIS
     Dates: start: 20100102, end: 20110601
  2. MIRENA [Suspect]
     Indication: CONTRACEPTION
     Dates: start: 20100102, end: 20110601

REACTIONS (1)
  - DEVICE DISLOCATION [None]
